FAERS Safety Report 25627141 (Version 7)
Quarter: 2025Q4

REPORT INFORMATION
  Report Type: Report from Study
  Country: US (occurrence: US)
  Receive Date: 20250731
  Receipt Date: 20251205
  Transmission Date: 20260118
  Serious: Yes (Other)
  Sender: INSMED
  Company Number: US-INSMED, INC.-2025-02057-US

PATIENT
  Sex: Female

DRUGS (1)
  1. ARIKAYCE [Suspect]
     Active Substance: AMIKACIN
     Indication: Mycobacterium avium complex infection
     Dosage: 590 MILLIGRAM, QD
     Route: 055
     Dates: start: 202504, end: 20251014

REACTIONS (11)
  - Oxygen saturation decreased [Not Recovered/Not Resolved]
  - Dyspnoea [Recovering/Resolving]
  - Depressed mood [Not Recovered/Not Resolved]
  - Condition aggravated [Unknown]
  - Rhinorrhoea [Not Recovered/Not Resolved]
  - Dyspnoea exertional [Recovering/Resolving]
  - Productive cough [Not Recovered/Not Resolved]
  - Cough [Not Recovered/Not Resolved]
  - Product dose omission issue [Unknown]
  - Drug ineffective [Unknown]
  - Intentional dose omission [Unknown]

NARRATIVE: CASE EVENT DATE: 20250101
